FAERS Safety Report 4783578-8 (Version None)
Quarter: 2005Q3

REPORT INFORMATION
  Report Type: 
  Country: None (occurrence: None)
  Receive Date: 20050929
  Receipt Date: 20050916
  Transmission Date: 20060218
  Serious: Yes (Other)
  Sender: FDA-Public Use
  Company Number: PHBS2005JP13821

PATIENT

DRUGS (1)
  1. NEORAL [Suspect]
     Indication: DERMATOSIS
     Route: 048

REACTIONS (1)
  - BRADYCARDIA [None]
